FAERS Safety Report 9169025 (Version 1)
Quarter: 2013Q1

REPORT INFORMATION
  Report Type: Spontaneous
  Country: US (occurrence: None)
  Receive Date: 20130314
  Receipt Date: 20130314
  Transmission Date: 20140127
  Serious: Yes (Life-Threatening)
  Sender: FDA-Public Use
  Company Number: None

PATIENT
  Age: 49 Year
  Sex: Female
  Weight: 78.02 kg

DRUGS (1)
  1. ZMAX [Suspect]

REACTIONS (3)
  - Palpitations [None]
  - Dyspnoea [None]
  - Atrial flutter [None]
